FAERS Safety Report 9062096 (Version 1)
Quarter: 2013Q1

REPORT INFORMATION
  Report Type: Report from Study
  Country: CA (occurrence: CA)
  Receive Date: 20130206
  Receipt Date: 20130206
  Transmission Date: 20140127
  Serious: Yes (Other)
  Sender: FDA-Public Use
  Company Number: CA-ROCHE-1167071

PATIENT
  Age: 42 None
  Sex: Female
  Weight: 61.4 kg

DRUGS (4)
  1. ACTEMRA [Suspect]
     Indication: RHEUMATOID ARTHRITIS
     Route: 042
     Dates: start: 2012
  2. ACTEMRA [Suspect]
     Route: 042
     Dates: start: 20121012
  3. PREDNISONE [Concomitant]
     Route: 065
  4. TOPAMAX [Concomitant]
     Route: 065

REACTIONS (7)
  - Skin lesion [Not Recovered/Not Resolved]
  - Pain in extremity [Not Recovered/Not Resolved]
  - Local swelling [Not Recovered/Not Resolved]
  - Heart rate increased [Not Recovered/Not Resolved]
  - Weight increased [Not Recovered/Not Resolved]
  - False positive investigation result [Recovered/Resolved]
  - Influenza like illness [Recovered/Resolved]
